FAERS Safety Report 25319306 (Version 1)
Quarter: 2025Q2

REPORT INFORMATION
  Report Type: Spontaneous
  Country: KR (occurrence: KR)
  Receive Date: 20250515
  Receipt Date: 20250515
  Transmission Date: 20250716
  Serious: Yes (Death)
  Sender: GUERBET
  Company Number: KR-GUERBET / KOREA-KR-20250020

PATIENT
  Age: 33 Year
  Sex: Female

DRUGS (2)
  1. IODIZED OIL [Suspect]
     Active Substance: IODIZED OIL
     Indication: Renal artery embolisation
     Dosage: A MIXTURE OF N-BUTYL CYANOACRYLATE AND IODIZED OIL.
     Route: 013
     Dates: end: 2019
  2. UNSPECIFIED INGREDIENT [Concomitant]
     Active Substance: UNSPECIFIED INGREDIENT
     Indication: Renal artery embolisation
     Route: 013
     Dates: end: 2019

REACTIONS (3)
  - Shock haemorrhagic [Fatal]
  - Haemorrhage [Fatal]
  - Product use in unapproved indication [Fatal]

NARRATIVE: CASE EVENT DATE: 20190101
